FAERS Safety Report 22184762 (Version 1)
Quarter: 2023Q2

REPORT INFORMATION
  Report Type: Spontaneous
  Country: US (occurrence: US)
  Receive Date: 20230407
  Receipt Date: 20230407
  Transmission Date: 20230722
  Serious: No
  Sender: FDA-Public Use
  Company Number: US-Melinta Therapeutics, LLC-US-MLNT-23-00145

PATIENT
  Age: 78 Year
  Sex: Male
  Weight: 85.4 kg

DRUGS (2)
  1. KIMYRSA [Suspect]
     Active Substance: ORITAVANCIN DIPHOSPHATE
     Indication: Arthritis infective
     Dosage: NOT PROVIDED.
     Route: 041
     Dates: start: 20221107, end: 20221107
  2. KIMYRSA [Suspect]
     Active Substance: ORITAVANCIN DIPHOSPHATE
     Indication: Device related infection
     Dosage: NOT PROVIDED.
     Route: 041
     Dates: start: 20221114, end: 20221114

REACTIONS (3)
  - Chills [Recovered/Resolved]
  - Off label use [Recovered/Resolved]
  - Multiple use of single-use product [Recovered/Resolved]

NARRATIVE: CASE EVENT DATE: 20221107
